FAERS Safety Report 13085038 (Version 1)
Quarter: 2017Q1

REPORT INFORMATION
  Report Type: Spontaneous
  Country: US (occurrence: US)
  Receive Date: 20170104
  Receipt Date: 20170104
  Transmission Date: 20170428
  Serious: No
  Sender: FDA-Public Use
  Company Number: None

PATIENT
  Sex: Female

DRUGS (1)
  1. HUMIRA [Suspect]
     Active Substance: ADALIMUMAB
     Indication: PSORIASIS
     Dosage: 40MG/.8ML - SUBCUTANEOUSLY - EVERY OTHER WEEK
     Route: 058
     Dates: start: 20161102

REACTIONS (4)
  - Peripheral swelling [None]
  - Dry skin [None]
  - Raynaud^s phenomenon [None]
  - Myalgia [None]
